FAERS Safety Report 19001091 (Version 2)
Quarter: 2021Q4

REPORT INFORMATION
  Report Type: Spontaneous
  Country: CA (occurrence: CA)
  Receive Date: 20210312
  Receipt Date: 20211025
  Transmission Date: 20220303
  Serious: Yes (Life-Threatening, Hospitalization, Other)
  Sender: FDA-Public Use
  Company Number: CA-GRANULES-CA-2021GRALIT00178

PATIENT
  Age: 31 Year
  Sex: Female

DRUGS (9)
  1. ACETAMINOPHEN [Suspect]
     Active Substance: ACETAMINOPHEN
     Indication: Toothache
     Route: 065
  2. MAGNESIUM SULFATE [Interacting]
     Active Substance: MAGNESIUM SULFATE
     Indication: Eclampsia
     Route: 042
  3. HUMULIN R [Interacting]
     Active Substance: INSULIN HUMAN
     Indication: Metabolic acidosis
     Route: 040
  4. HUMULIN R [Interacting]
     Active Substance: INSULIN HUMAN
     Indication: Hyperkalaemia
  5. SODIUM BICARBONATE [Interacting]
     Active Substance: SODIUM BICARBONATE
     Indication: Hyperkalaemia
     Route: 065
  6. SODIUM BICARBONATE [Interacting]
     Active Substance: SODIUM BICARBONATE
     Indication: Metabolic acidosis
  7. ACETYLCYSTEINE [Interacting]
     Active Substance: ACETYLCYSTEINE
     Indication: Overdose
     Route: 065
  8. ACETYLCYSTEINE [Interacting]
     Active Substance: ACETYLCYSTEINE
     Route: 065
  9. ACETYLCYSTEINE [Interacting]
     Active Substance: ACETYLCYSTEINE
     Route: 065

REACTIONS (7)
  - Toxicity to various agents [Recovered/Resolved]
  - Maternal exposure during pregnancy [Recovered/Resolved with Sequelae]
  - Eclampsia [Unknown]
  - Hyperkalaemia [Recovered/Resolved]
  - Metabolic acidosis [Recovered/Resolved]
  - Premature delivery [Recovered/Resolved with Sequelae]
  - Drug-induced liver injury [Recovered/Resolved]
